FAERS Safety Report 5343147-8 (Version None)
Quarter: 2007Q2

REPORT INFORMATION
  Report Type: 
  Country: None (occurrence: None)
  Receive Date: 20070416
  Receipt Date: 20070222
  Transmission Date: 20071010
  Serious: No
  Sender: FDA-Public Use
  Company Number: 2007SP000591

PATIENT
  Age: 66 Year
  Sex: Male
  Weight: 72.5755 kg

DRUGS (11)
  1. LUNESTA [Suspect]
     Indication: INSOMNIA
     Dosage: SEE IMAGE
     Route: 048
     Dates: start: 20060201, end: 20060501
  2. LUNESTA [Suspect]
     Indication: INSOMNIA
     Dosage: SEE IMAGE
     Route: 048
     Dates: start: 20060501
  3. CRESTOR [Concomitant]
  4. ZETIA [Concomitant]
  5. ASPIRIN [Concomitant]
  6. PANTOPRAZOLE SODIUM [Concomitant]
  7. METOPROLOL SUCCINATE [Concomitant]
  8. DOXYCYCLINE [Concomitant]
  9. FLONASE [Concomitant]
  10. OMEGA 3 [Concomitant]
  11. CENTRUM SILVER [Concomitant]

REACTIONS (2)
  - DRY EYE [None]
  - LETHARGY [None]
